FAERS Safety Report 21985071 (Version 1)
Quarter: 2023Q1

REPORT INFORMATION
  Report Type: Spontaneous
  Country: US (occurrence: None)
  Receive Date: 20230210
  Receipt Date: 20230210
  Transmission Date: 20230417
  Serious: No
  Sender: FDA-Public Use
  Company Number: None

PATIENT
  Age: 60 Year
  Sex: Female
  Weight: 96.3 kg

DRUGS (1)
  1. REGLAN [Suspect]
     Active Substance: METOCLOPRAMIDE HYDROCHLORIDE
     Indication: Gastric disorder
     Dosage: OTHER FREQUENCY : I DON^T REMEMBER;?
     Route: 048

REACTIONS (1)
  - Trigeminal neuralgia [None]

NARRATIVE: CASE EVENT DATE: 20230210
